FAERS Safety Report 13004103 (Version 1)
Quarter: 2016Q4

REPORT INFORMATION
  Report Type: Spontaneous
  Country: US (occurrence: US)
  Receive Date: 20161206
  Receipt Date: 20161206
  Transmission Date: 20170207
  Serious: No
  Sender: FDA-Public Use
  Company Number: US-JAZZ-JPI-P-009531

PATIENT
  Age: 51 Year
  Sex: Male
  Weight: 77.27 kg

DRUGS (20)
  1. NAPRELAN [Concomitant]
     Active Substance: NAPROXEN SODIUM
  2. ZANTAC [Concomitant]
     Active Substance: RANITIDINE HYDROCHLORIDE
  3. ACIDOPHILUS [Concomitant]
     Active Substance: LACTOBACILLUS ACIDOPHILUS
  4. BUSPIRONE HCL [Concomitant]
     Active Substance: BUSPIRONE HYDROCHLORIDE
  5. XYREM [Suspect]
     Active Substance: SODIUM OXYBATE
     Indication: NARCOLEPSY
     Dosage: 2.25 G, BID
     Route: 048
     Dates: start: 200912, end: 200912
  6. ZYPREXA [Concomitant]
     Active Substance: OLANZAPINE
  7. TERBINAFINE HCL [Concomitant]
     Active Substance: TERBINAFINE HYDROCHLORIDE
  8. EFFEXOR [Concomitant]
     Active Substance: VENLAFAXINE HYDROCHLORIDE
  9. PROVIGIL [Concomitant]
     Active Substance: MODAFINIL
  10. HALCION [Concomitant]
     Active Substance: TRIAZOLAM
  11. NAPROXEN. [Concomitant]
     Active Substance: NAPROXEN
  12. TYLENOL [Concomitant]
     Active Substance: ACETAMINOPHEN
  13. VITAMIN B [Concomitant]
     Active Substance: VITAMIN B
  14. OXYCODONE HYDROCHLORIDE. [Concomitant]
     Active Substance: OXYCODONE HYDROCHLORIDE
  15. NEXIUM [Concomitant]
     Active Substance: ESOMEPRAZOLE MAGNESIUM
  16. TUMS EX [Concomitant]
     Active Substance: CALCIUM CARBONATE
  17. XYREM [Suspect]
     Active Substance: SODIUM OXYBATE
     Indication: SOMNOLENCE
     Dosage: 3 G, BID
     Route: 048
     Dates: start: 20100104
  18. BUTRANS [Concomitant]
     Active Substance: BUPRENORPHINE
  19. SKELAXIN [Concomitant]
     Active Substance: METAXALONE
  20. VITAMIN B12 [Concomitant]
     Active Substance: CYANOCOBALAMIN

REACTIONS (6)
  - Condition aggravated [Unknown]
  - Feeling abnormal [Unknown]
  - Insomnia [Unknown]
  - Muscle twitching [Unknown]
  - Dry mouth [Recovering/Resolving]
  - Malaise [Unknown]

NARRATIVE: CASE EVENT DATE: 20091224
